FAERS Safety Report 13182183 (Version 2)
Quarter: 2017Q1

REPORT INFORMATION
  Report Type: Report from Study
  Country: None (occurrence: US)
  Receive Date: 20170202
  Receipt Date: 20170303
  Transmission Date: 20170428
  Serious: Yes (Hospitalization, Other)
  Sender: FDA-Public Use
  Company Number: US-ABBVIE-17P-163-1860152-00

PATIENT
  Age: 84 Year
  Sex: Female

DRUGS (6)
  1. LACTULOSE. [Concomitant]
     Active Substance: LACTULOSE
     Indication: PRODUCT USED FOR UNKNOWN INDICATION
     Dosage: DOSE: 1 DOSE
     Route: 048
     Dates: start: 20160720
  2. SEROQUEL [Concomitant]
     Active Substance: QUETIAPINE FUMARATE
     Indication: PRODUCT USED FOR UNKNOWN INDICATION
     Dosage: DOSE: 1 TAB
     Route: 048
     Dates: start: 20160720
  3. VENLAFAXINE [Concomitant]
     Active Substance: VENLAFAXINE HYDROCHLORIDE
     Indication: PRODUCT USED FOR UNKNOWN INDICATION
     Route: 048
     Dates: start: 20160720
  4. DUOPA [Suspect]
     Active Substance: CARBIDOPA\LEVODOPA
     Indication: PARKINSON^S DISEASE
     Route: 050
     Dates: start: 20160720
  5. DUOPA [Suspect]
     Active Substance: CARBIDOPA\LEVODOPA
     Route: 050
  6. SYNTHROID [Concomitant]
     Active Substance: LEVOTHYROXINE SODIUM
     Indication: PRODUCT USED FOR UNKNOWN INDICATION
     Dosage: DOSE: 1 TAB
     Route: 048
     Dates: start: 20160720

REACTIONS (5)
  - Wrist fracture [Unknown]
  - Balance disorder [Recovering/Resolving]
  - Fall [Recovering/Resolving]
  - Device occlusion [Recovered/Resolved]
  - Pain [Not Recovered/Not Resolved]

NARRATIVE: CASE EVENT DATE: 20170119
